FAERS Safety Report 25244432 (Version 1)
Quarter: 2025Q2

REPORT INFORMATION
  Report Type: Spontaneous
  Country: TR (occurrence: TR)
  Receive Date: 20250428
  Receipt Date: 20250428
  Transmission Date: 20250716
  Serious: Yes (Death, Life-Threatening, Other)
  Sender: ALKEM
  Company Number: TR-ALKEM LABORATORIES LIMITED-TR-ALKEM-2024-23246

PATIENT
  Age: 4 Year
  Sex: Male

DRUGS (2)
  1. SIROLIMUS [Suspect]
     Active Substance: SIROLIMUS
     Indication: Immunoglobulin therapy
     Route: 065
  2. PREDNISONE [Suspect]
     Active Substance: PREDNISONE
     Indication: Immunoglobulin therapy
     Route: 065

REACTIONS (3)
  - Sepsis [Fatal]
  - Transplant failure [Unknown]
  - Cytomegalovirus infection [Unknown]
